FAERS Safety Report 18497557 (Version 1)
Quarter: 2020Q4

REPORT INFORMATION
  Report Type: Spontaneous
  Country: BG (occurrence: BG)
  Receive Date: 20201112
  Receipt Date: 20201112
  Transmission Date: 20210114
  Serious: Yes (Death)
  Sender: FDA-Public Use
  Company Number: NVSC2020BG301905

PATIENT
  Age: 19 Year
  Sex: Male

DRUGS (34)
  1. DEXAMETHASONE. [Suspect]
     Active Substance: DEXAMETHASONE
     Indication: PRODUCT USED FOR UNKNOWN INDICATION
     Dosage: UNK (4 MG/1 ML - 2X2 AMP) (AMP)
     Route: 065
  2. ROACTEMRA [Suspect]
     Active Substance: TOCILIZUMAB
     Indication: COVID-19 PNEUMONIA
     Dosage: UNK (200 MG/20ML)
     Route: 065
     Dates: start: 20200101
  3. QUAMATEL [Suspect]
     Active Substance: FAMOTIDINE
     Indication: PRODUCT USED FOR UNKNOWN INDICATION
     Dosage: 20 MG (2X1 VIAL) (AMP)
     Route: 065
  4. VITAMIIN C [Suspect]
     Active Substance: ASCORBIC ACID
     Indication: PRODUCT USED FOR UNKNOWN INDICATION
     Dosage: UNK (10 5 5 ML 2X4 AMP) (AMPOULE)
     Route: 065
  5. SINEQUAN [Suspect]
     Active Substance: DOXEPIN HYDROCHLORIDE
     Indication: PRODUCT USED FOR UNKNOWN INDICATION
     Dosage: UNK (X 2 CAPS)
     Route: 065
  6. CHLOROQUINE PHOSPHATE. [Suspect]
     Active Substance: CHLOROQUINE PHOSPHATE
     Indication: PRODUCT USED FOR UNKNOWN INDICATION
     Dosage: 250 MG (2X1 TABLETS)
     Route: 065
  7. SUMAMED [Suspect]
     Active Substance: AZITHROMYCIN ANHYDROUS
     Indication: PRODUCT USED FOR UNKNOWN INDICATION
     Dosage: 500 MG (VIAL)
     Route: 065
  8. MIDAZOLAM. [Suspect]
     Active Substance: MIDAZOLAM
     Indication: PRODUCT USED FOR UNKNOWN INDICATION
     Dosage: UNK (5 MG - 5 5 ML - IN PERFUSION) (AMP)
     Route: 065
  9. MEROPENEM. [Suspect]
     Active Substance: MEROPENEM
     Indication: PRODUCT USED FOR UNKNOWN INDICATION
     Dosage: 1 G (3X1.0) (VIAL)
     Route: 065
  10. ROACTEMRA [Suspect]
     Active Substance: TOCILIZUMAB
     Dosage: UNK (400 MG/20 ML)
     Route: 065
     Dates: start: 2020
  11. CLEXANE [Suspect]
     Active Substance: ENOXAPARIN SODIUM
     Indication: PRODUCT USED FOR UNKNOWN INDICATION
     Dosage: UNK (60 MG/0.60 ML - X1VIAL) (AMP)
     Route: 065
  12. DEGAN [Suspect]
     Active Substance: METOCLOPRAMIDE HYDROCHLORIDE
     Indication: PRODUCT USED FOR UNKNOWN INDICATION
     Dosage: UNK (10 MG - 2 ML - AS PRESCRIBED) (AMP)
     Route: 065
  13. SODIUM CHLORIDE. [Suspect]
     Active Substance: SODIUM CHLORIDE
     Indication: PRODUCT USED FOR UNKNOWN INDICATION
     Dosage: 0.9 % (100 ML ECO-BOTTLE BY PRESCRIPTION)
     Route: 065
  14. PARACETAMOL [Suspect]
     Active Substance: ACETAMINOPHEN
     Indication: PRODUCT USED FOR UNKNOWN INDICATION
     Dosage: 100 ML (10 MG/ML)
     Route: 065
  15. ENTEROL (SACCHAROMYCES BOULARDII) [Suspect]
     Active Substance: SACCHAROMYCES CEREVISIAE
     Indication: PRODUCT USED FOR UNKNOWN INDICATION
     Dosage: UNK (250 MG * 10 - 2X2 CAPS)
     Route: 065
  16. AZITROX [Suspect]
     Active Substance: AZITHROMYCIN
     Indication: PRODUCT USED FOR UNKNOWN INDICATION
     Dosage: UNK
     Route: 065
  17. SOMAZINA [Suspect]
     Active Substance: CITICOLINE
     Indication: PRODUCT USED FOR UNKNOWN INDICATION
     Dosage: UNK (1000 MG 4 ML 2X1 AMP) (AMP)
     Route: 065
  18. METAMIZOLE [Suspect]
     Active Substance: METAMIZOLE
     Indication: PRODUCT USED FOR UNKNOWN INDICATION
     Dosage: UNK (X 2 CAPSAMP. 500MG/ML 2 ML)
     Route: 065
  19. METHYLPREDNISOLONE. [Suspect]
     Active Substance: METHYLPREDNISOLONE
     Indication: PRODUCT USED FOR UNKNOWN INDICATION
     Dosage: UNK (40 MG / 2 ML) (AMP)
     Route: 065
  20. FLEXIDOL RELAX [Suspect]
     Active Substance: MELOXICAM\PRIDINOL MESILATE
     Indication: PRODUCT USED FOR UNKNOWN INDICATION
     Dosage: 100 ML (5 MG/ML)
     Route: 065
  21. SERUM GLUCOSE [Suspect]
     Active Substance: DEXTROSE
     Indication: PRODUCT USED FOR UNKNOWN INDICATION
     Dosage: 500 ML (BY PRESCRIPTION) (INF.)
     Route: 042
  22. MEROPEN [Suspect]
     Active Substance: MEROPENEM
     Indication: PRODUCT USED FOR UNKNOWN INDICATION
     Dosage: 1000 MG (3X1.0) (VIAL)
     Route: 065
  23. BROMHEXINE [Suspect]
     Active Substance: BROMHEXINE
     Indication: PRODUCT USED FOR UNKNOWN INDICATION
     Dosage: UNK (4 MG 2 ML - AS PRESCRIBED) (AMP)
     Route: 065
  24. CALCIUM GLUCONATE. [Suspect]
     Active Substance: CALCIUM GLUCONATE
     Indication: PRODUCT USED FOR UNKNOWN INDICATION
     Dosage: UNK (8.94 MG/ML - 10 ML - 2X1 AMP) (AMP)
     Route: 065
  25. CHLOPHAZOLIN [Suspect]
     Active Substance: CLONIDINE HYDROCHLORIDE
     Indication: PRODUCT USED FOR UNKNOWN INDICATION
     Dosage: UNK (0.15 MG/ML - AS PRESCRIBED) (AMP)
     Route: 065
  26. ALBUNORM [Suspect]
     Active Substance: ALBUMIN HUMAN
     Indication: PRODUCT USED FOR UNKNOWN INDICATION
     Dosage: 10 %, ONCE/SINGLE
     Route: 065
  27. DIFLAZON [Suspect]
     Active Substance: FLUCONAZOLE
     Indication: PRODUCT USED FOR UNKNOWN INDICATION
     Dosage: UNK (2 MG/1 ML - 100 ML - X 2 VIAL) (VIAL)
     Route: 065
  28. ESOMEPRAZOLE. [Suspect]
     Active Substance: ESOMEPRAZOLE MAGNESIUM
     Indication: PRODUCT USED FOR UNKNOWN INDICATION
     Dosage: 40 MG (2X1 VIAL)
     Route: 065
  29. FUROSEMIDE. [Suspect]
     Active Substance: FUROSEMIDE
     Indication: PRODUCT USED FOR UNKNOWN INDICATION
     Dosage: UNK (10 MG/ML - AS PRESCRIBED) (AMP)
     Route: 065
  30. FRAXIPARINE [Suspect]
     Active Substance: NADROPARIN CALCIUM
     Indication: PRODUCT USED FOR UNKNOWN INDICATION
     Dosage: 0.6 ML (1 VIAL MG/ML AS PRESCRIBED)
     Route: 065
  31. CARSIL [Suspect]
     Active Substance: DIETARY SUPPLEMENT\HERBALS\MILK THISTLE
     Indication: PRODUCT USED FOR UNKNOWN INDICATION
     Dosage: UNK (90 MG * 30 PCS. - ACCORDING TO THE SCHEME)
     Route: 065
  32. NUTRIFLEX OMEGA PLUS [Suspect]
     Active Substance: AMINO ACIDS\DEXTROSE\ELECTROLYTES NOS\SOYBEAN OIL
     Indication: PRODUCT USED FOR UNKNOWN INDICATION
     Dosage: UNK (875 ML - 2 PCS)
     Route: 065
  33. VANCOCIN [Suspect]
     Active Substance: VANCOMYCIN HYDROCHLORIDE
     Indication: PRODUCT USED FOR UNKNOWN INDICATION
     Dosage: 1 G (2X1.0) (VIAL)
     Route: 065
  34. STEROFUNDIN [Suspect]
     Active Substance: CALCIUM CHLORIDE\MAGNESIUM CHLORIDE\POTASSIUM CHLORIDE\SODIUM ACETATE\SODIUM CHLORIDE
     Indication: PRODUCT USED FOR UNKNOWN INDICATION
     Dosage: UNK (500 L - ECO-VIAL - X500 ML)
     Route: 065

REACTIONS (14)
  - Confusional state [Fatal]
  - Pulmonary oedema [Fatal]
  - Embolism [Fatal]
  - Hypertension [Fatal]
  - Tachypnoea [Fatal]
  - Intentional product use issue [Unknown]
  - Brain oedema [Fatal]
  - Acute respiratory failure [Fatal]
  - Off label use [Unknown]
  - COVID-19 pneumonia [Fatal]
  - Hypoxia [Fatal]
  - Hallucination [Fatal]
  - Encephalopathy [Fatal]
  - Cardiovascular insufficiency [Fatal]

NARRATIVE: CASE EVENT DATE: 20200712
